FAERS Safety Report 25417561 (Version 2)
Quarter: 2025Q3

REPORT INFORMATION
  Report Type: Spontaneous
  Country: EU (occurrence: EU)
  Receive Date: 20250610
  Receipt Date: 20250711
  Transmission Date: 20251021
  Serious: Yes (Hospitalization, Other)
  Sender: TEVA
  Company Number: None

PATIENT
  Age: 0 Day
  Sex: Female

DRUGS (1)
  1. VENLAFAXINE [Suspect]
     Active Substance: VENLAFAXINE HYDROCHLORIDE
     Indication: Anxiety
     Dosage: STRENGTH: 75 MG + 150 MG
     Route: 064
     Dates: start: 2010

REACTIONS (5)
  - Neonatal tachypnoea [Recovered/Resolved]
  - Foetal exposure during pregnancy [Recovered/Resolved]
  - Drug withdrawal syndrome neonatal [Recovered/Resolved]
  - Tremor neonatal [Recovered/Resolved]
  - Restlessness [Recovered/Resolved]

NARRATIVE: CASE EVENT DATE: 20241114
